FAERS Safety Report 8032809-X (Version None)
Quarter: 2012Q1

REPORT INFORMATION
  Report Type: 
  Country: None (occurrence: None)
  Receive Date: 20120110
  Receipt Date: 20120104
  Transmission Date: 20120608
  Serious: Yes (Death)
  Sender: FDA-Public Use
  Company Number: IT-ASTELLAS-2012EU000126

PATIENT
  Age: 58 Year
  Sex: Male

DRUGS (3)
  1. TACROLIMUS [Suspect]
     Indication: LIVER TRANSPLANT
     Dosage: UNK
     Route: 065
  2. BASILIXIMAB [Concomitant]
     Indication: LIVER TRANSPLANT
     Dosage: 2 MG, UNKNOWN/D
     Route: 042
  3. PREDNISONE [Concomitant]
     Dosage: 25 MG, UNKNOWN/D
     Route: 065

REACTIONS (1)
  - HUMAN HERPESVIRUS 8 INFECTION [None]
